FAERS Safety Report 13125291 (Version 1)
Quarter: 2017Q1

REPORT INFORMATION
  Report Type: Spontaneous
  Country: NL (occurrence: NL)
  Receive Date: 20170118
  Receipt Date: 20170118
  Transmission Date: 20170428
  Serious: Yes (Other)
  Sender: FDA-Public Use
  Company Number: NL-PFIZER INC-2017018889

PATIENT
  Age: 38 Year
  Sex: Female

DRUGS (2)
  1. ADALIMUMAB [Concomitant]
     Active Substance: ADALIMUMAB
     Dosage: 40 MG, 1X/2 WEEKS
     Route: 058
     Dates: start: 20150213, end: 20150505
  2. CELECOXIB. [Suspect]
     Active Substance: CELECOXIB
     Indication: RHEUMATOID ARTHRITIS
     Dosage: 200 MG, 2X/DAY
     Route: 048
     Dates: start: 20150106, end: 20150320

REACTIONS (1)
  - Urticarial vasculitis [Unknown]

NARRATIVE: CASE EVENT DATE: 20150320
